FAERS Safety Report 20658902 (Version 2)
Quarter: 2022Q2

REPORT INFORMATION
  Report Type: Spontaneous
  Country: HU (occurrence: HU)
  Receive Date: 20220331
  Receipt Date: 20220425
  Transmission Date: 20220720
  Serious: Yes (Other)
  Sender: FDA-Public Use
  Company Number: HU-002147023-NVSC2022HU056894

PATIENT
  Sex: Female

DRUGS (7)
  1. DOXORUBICIN HYDROCHLORIDE [Suspect]
     Active Substance: DOXORUBICIN HYDROCHLORIDE
     Indication: Breast cancer metastatic
     Dosage: UNK
     Route: 065
     Dates: start: 20071002, end: 20080118
  2. CYCLOPHOSPHAMIDE [Suspect]
     Active Substance: CYCLOPHOSPHAMIDE
     Indication: Breast cancer metastatic
     Dosage: UNK
     Route: 065
     Dates: start: 20071002, end: 20080118
  3. FLUOROURACIL [Suspect]
     Active Substance: FLUOROURACIL
     Indication: Breast cancer metastatic
     Dosage: UNK
     Route: 065
     Dates: start: 20071002, end: 20080118
  4. RIBOCICLIB [Suspect]
     Active Substance: RIBOCICLIB
     Indication: Breast cancer metastatic
     Dosage: 600 MG (DAILY FOR 21 DAYS, FOLLOWED BY A 7-DAY REST PERIOD)
     Route: 065
     Dates: start: 2019
  5. LETROZOLE [Suspect]
     Active Substance: LETROZOLE
     Indication: Breast cancer metastatic
     Dosage: UNK
     Route: 065
     Dates: start: 20080308, end: 2014
  6. LETROZOLE [Suspect]
     Active Substance: LETROZOLE
     Dosage: UNK, QD
     Route: 065
     Dates: start: 2019
  7. IBANDRONIC ACID [Suspect]
     Active Substance: IBANDRONIC ACID
     Indication: Breast cancer
     Dosage: UNK
     Route: 048

REACTIONS (10)
  - Hydrothorax [Recovering/Resolving]
  - Pleural effusion [Recovering/Resolving]
  - Neutropenia [Unknown]
  - Leukopenia [Unknown]
  - Dyspnoea [Recovered/Resolved]
  - Blood glucose decreased [Unknown]
  - Gamma-glutamyltransferase increased [Unknown]
  - Blood calcium decreased [Unknown]
  - Neoplasm progression [Unknown]
  - Neoplasm recurrence [Unknown]

NARRATIVE: CASE EVENT DATE: 20190624
